FAERS Safety Report 19298743 (Version 1)
Quarter: 2021Q2

REPORT INFORMATION
  Report Type: Other
  Country: CN (occurrence: CN)
  Receive Date: 20210525
  Receipt Date: 20210525
  Transmission Date: 20210717
  Serious: Yes (Other)
  Sender: FDA-Public Use
  Company Number: CN-ROCHE-2836726

PATIENT

DRUGS (2)
  1. ALTEPLASE. [Suspect]
     Active Substance: ALTEPLASE
     Indication: CEREBRAL INFARCTION
     Dosage: TAKE 5 MG OF ALTEPLASE AND DISSOLVE IN 10 ML OF NORMAL SALINE, CONDUCT INTRAVENOUS INJECTION ON PATI
     Route: 042
  2. ALTEPLASE. [Suspect]
     Active Substance: ALTEPLASE
     Dosage: THEN TAKEN 45 MG OF ALTEPLASE TO DISSOLVE IN 100 ML OF NORMAL SALINE, CONDUCT INTRAVENOUS DRIP UP TO
     Route: 042

REACTIONS (2)
  - No adverse event [Unknown]
  - Drug ineffective [Unknown]
